FAERS Safety Report 5708232-7 (Version None)
Quarter: 2008Q2

REPORT INFORMATION
  Report Type: 
  Country: None (occurrence: None)
  Receive Date: 20080417
  Receipt Date: 20080409
  Transmission Date: 20081010
  Serious: Yes (Other)
  Sender: FDA-Public Use
  Company Number: US-GILEAD-2008-0015359

PATIENT
  Sex: Female

DRUGS (6)
  1. LETAIRIS [Suspect]
     Indication: PULMONARY HYPERTENSION
     Route: 048
     Dates: start: 20071120
  2. COUMADIN [Suspect]
     Indication: PULMONARY HYPERTENSION
  3. REVATIO [Suspect]
     Indication: PULMONARY HYPERTENSION
  4. LASIX [Concomitant]
     Indication: OEDEMA
     Route: 048
  5. CARDIZEM [Concomitant]
  6. FORTEO [Concomitant]
     Route: 058

REACTIONS (7)
  - DRUG INTERACTION [None]
  - DYSPNOEA [None]
  - FALL [None]
  - INCREASED TENDENCY TO BRUISE [None]
  - OEDEMA [None]
  - OEDEMA PERIPHERAL [None]
  - PALPITATIONS [None]
